FAERS Safety Report 7586530-2 (Version None)
Quarter: 2011Q3

REPORT INFORMATION
  Report Type: 
  Country: None (occurrence: None)
  Receive Date: 20110701
  Receipt Date: 20110622
  Transmission Date: 20111222
  Serious: Yes (Hospitalization)
  Sender: FDA-Public Use
  Company Number: KR-ROCHE-786029

PATIENT
  Sex: Female

DRUGS (14)
  1. LEVOSULPIRIDE [Concomitant]
     Route: 048
     Dates: start: 20110114, end: 20110117
  2. TOCILIZUMAB [Suspect]
     Indication: RHEUMATOID ARTHRITIS
     Route: 042
     Dates: start: 20101021
  3. BLINDED TOCILIZUMAB [Suspect]
     Indication: RHEUMATOID ARTHRITIS
     Dosage: END OF STUDY
     Route: 042
     Dates: start: 20100427, end: 20101014
  4. CELECOXIB [Concomitant]
     Route: 048
     Dates: start: 20081229
  5. ALMAGATE [Concomitant]
     Route: 048
     Dates: start: 20110114, end: 20110124
  6. FOLIC ACID [Concomitant]
     Route: 048
     Dates: start: 20070921
  7. METHOTREXATE [Concomitant]
     Route: 048
     Dates: start: 20090121
  8. BENPROPERINE PHOSPHATE [Concomitant]
     Route: 048
     Dates: start: 20110114, end: 20110117
  9. MEQUITAZINE [Concomitant]
     Route: 048
     Dates: start: 20110307, end: 20110308
  10. FEMOSTON [Concomitant]
     Route: 048
     Dates: start: 20091215
  11. PIPRINHYDRINATE [Concomitant]
     Route: 048
     Dates: start: 20110114, end: 20110117
  12. RABEPRAZOLE SODIUM [Concomitant]
     Route: 048
     Dates: start: 20110114, end: 20110124
  13. REBAMIPIDE [Concomitant]
     Route: 048
     Dates: start: 20110114, end: 20110124
  14. ACEBROPHYLLINE [Concomitant]
     Route: 048
     Dates: start: 20110307, end: 20110308

REACTIONS (2)
  - PULMONARY EMBOLISM [None]
  - DEEP VEIN THROMBOSIS [None]
